FAERS Safety Report 8461162-2 (Version None)
Quarter: 2012Q2

REPORT INFORMATION
  Report Type: 
  Country: None (occurrence: None)
  Receive Date: 20120625
  Receipt Date: 20120618
  Transmission Date: 20120825
  Serious: No
  Sender: FDA-Public Use
  Company Number: US-PFIZER INC-2012147543

PATIENT
  Sex: Female

DRUGS (2)
  1. PRISTIQ [Suspect]
     Dosage: 100 MG, UNK
     Dates: end: 20120618
  2. PRISTIQ [Suspect]
     Indication: DEPRESSION
     Dosage: 50 MG, UNK

REACTIONS (2)
  - ALOPECIA [None]
  - DRUG INEFFECTIVE [None]
